FAERS Safety Report 12781762 (Version 2)
Quarter: 2017Q1

REPORT INFORMATION
  Report Type: Spontaneous
  Country: US (occurrence: US)
  Receive Date: 20160926
  Receipt Date: 20170302
  Transmission Date: 20170428
  Serious: No
  Sender: FDA-Public Use
  Company Number: US-TEVA-694458USA

PATIENT
  Sex: Male

DRUGS (2)
  1. FENTORA [Suspect]
     Active Substance: FENTANYL CITRATE
     Indication: PAIN
     Route: 065
     Dates: start: 2009, end: 2011
  2. ACTIQ [Suspect]
     Active Substance: FENTANYL CITRATE
     Indication: PAIN
     Route: 065
     Dates: end: 2009

REACTIONS (4)
  - Pain [Not Recovered/Not Resolved]
  - Dental caries [Unknown]
  - Somnolence [Unknown]
  - Product use issue [Unknown]
